FAERS Safety Report 6628429-1 (Version None)
Quarter: 2010Q1

REPORT INFORMATION
  Report Type: 
  Country: None (occurrence: None)
  Receive Date: 20100311
  Receipt Date: 20100226
  Transmission Date: 20100710
  Serious: Yes (Life-Threatening)
  Sender: FDA-Public Use
  Company Number: GB-PFIZER INC-2010009390

PATIENT
  Age: 61 Year
  Sex: Male
  Weight: 77 kg

DRUGS (6)
  1. CHAMPIX [Suspect]
     Dosage: 1 MG, 2X/DAY
     Route: 048
     Dates: start: 20091127, end: 20091223
  2. CLENIL [Concomitant]
  3. DF118 [Concomitant]
  4. LANSOPRAZOLE [Concomitant]
  5. PARACETAMOL [Concomitant]
  6. SALBUTAMOL [Concomitant]

REACTIONS (4)
  - ABNORMAL DREAMS [None]
  - APATHY [None]
  - DEPRESSED MOOD [None]
  - FATIGUE [None]
